FAERS Safety Report 20649603 (Version 1)
Quarter: 2022Q1

REPORT INFORMATION
  Report Type: Spontaneous
  Country: HR (occurrence: HR)
  Receive Date: 20220329
  Receipt Date: 20220329
  Transmission Date: 20220423
  Serious: Yes (Hospitalization, Other)
  Sender: FDA-Public Use
  Company Number: HR-ABBVIE-22K-216-4308813-00

PATIENT
  Sex: Male

DRUGS (2)
  1. RITUXIMAB [Suspect]
     Active Substance: RITUXIMAB
     Dosage: UNK
     Route: 065
  2. VENETOCLAX [Suspect]
     Active Substance: VENETOCLAX
     Indication: Chronic lymphocytic leukaemia
     Dosage: UNK
     Route: 048
     Dates: start: 20210623, end: 20211216

REACTIONS (17)
  - Decreased appetite [Unknown]
  - Neurodegenerative disorder [Unknown]
  - Dysuria [Unknown]
  - Haematuria [Unknown]
  - Cryptococcosis [Unknown]
  - Escherichia urinary tract infection [Unknown]
  - Nausea [Unknown]
  - Pyrexia [Unknown]
  - Cerebral atrophy [Unknown]
  - Central nervous system lesion [Unknown]
  - Asthenia [Unknown]
  - Confusional state [Unknown]
  - Meningitis cryptococcal [Unknown]
  - JC virus infection [Unknown]
  - Fatigue [Unknown]
  - Vascular encephalopathy [Unknown]
  - Benign prostatic hyperplasia [Unknown]

NARRATIVE: CASE EVENT DATE: 20211103
